FAERS Safety Report 18644204 (Version 3)
Quarter: 2021Q1

REPORT INFORMATION
  Report Type: Spontaneous
  Country: US (occurrence: US)
  Receive Date: 20201221
  Receipt Date: 20210131
  Transmission Date: 20210419
  Serious: No
  Sender: FDA-Public Use
  Company Number: US-GLAXOSMITHKLINE-US2020AMR247392

PATIENT
  Sex: Female

DRUGS (2)
  1. ZEJULA [Suspect]
     Active Substance: NIRAPARIB
     Dosage: 300 MG, QD
     Route: 048
  2. ZEJULA [Suspect]
     Active Substance: NIRAPARIB
     Indication: OVARIAN CANCER
     Dosage: 300 MG, QD
     Route: 048
     Dates: start: 20201203

REACTIONS (7)
  - Heart rate increased [Unknown]
  - Nausea [Unknown]
  - White blood cell count increased [Unknown]
  - Fatigue [Unknown]
  - Red blood cell count decreased [Unknown]
  - Blood pressure increased [Not Recovered/Not Resolved]
  - Laboratory test abnormal [Unknown]
